FAERS Safety Report 10959136 (Version 6)
Quarter: 2015Q2

REPORT INFORMATION
  Report Type: Spontaneous
  Country: JP (occurrence: JP)
  Receive Date: 20150327
  Receipt Date: 20150604
  Transmission Date: 20150821
  Serious: Yes (Hospitalization, Other)
  Sender: FDA-Public Use
  Company Number: JP-ABBVIE-15K-087-1350096-00

PATIENT
  Age: 70 Year
  Sex: Female
  Weight: 48 kg

DRUGS (5)
  1. TRAMADOL HYDROCHLORIDE AND ACETAMINOPHEN [Concomitant]
     Active Substance: ACETAMINOPHEN\TRAMADOL HYDROCHLORIDE
     Indication: RHEUMATIC DISORDER
     Route: 048
  2. HUMIRA [Suspect]
     Active Substance: ADALIMUMAB
     Route: 058
     Dates: start: 20140627, end: 20141211
  3. ACETAMINOPHEN. [Concomitant]
     Active Substance: ACETAMINOPHEN
     Indication: RHEUMATIC DISORDER
     Route: 048
  4. HUMIRA [Suspect]
     Active Substance: ADALIMUMAB
     Indication: RHEUMATOID ARTHRITIS
     Route: 058
     Dates: start: 20140502, end: 20140626
  5. PREDNISOLONE. [Suspect]
     Active Substance: PREDNISOLONE
     Indication: RHEUMATIC DISORDER
     Route: 048
     Dates: start: 20130917

REACTIONS (21)
  - Dehydration [Unknown]
  - Uveitis [Recovering/Resolving]
  - Sepsis [Recovered/Resolved]
  - Lymph node tuberculosis [Unknown]
  - Back pain [Unknown]
  - Ocular hyperaemia [Unknown]
  - General physical health deterioration [Unknown]
  - Septic embolus [Unknown]
  - Atrial fibrillation [Recovered/Resolved]
  - Pyrexia [Unknown]
  - Hypertonia [Unknown]
  - Road traffic accident [Recovered/Resolved with Sequelae]
  - Hypovolaemic shock [Unknown]
  - Pulmonary embolism [Unknown]
  - Respiratory alkalosis [Unknown]
  - Cellulitis [Recovered/Resolved]
  - Skin wound [Recovered/Resolved]
  - Tachypnoea [Unknown]
  - Metabolic acidosis [Unknown]
  - Deep vein thrombosis [Not Recovered/Not Resolved]
  - Decubitus ulcer [Recovered/Resolved]

NARRATIVE: CASE EVENT DATE: 2014
